FAERS Safety Report 22640281 (Version 1)
Quarter: 2023Q2

REPORT INFORMATION
  Report Type: Spontaneous
  Country: IT (occurrence: IT)
  Receive Date: 20230626
  Receipt Date: 20230626
  Transmission Date: 20230721
  Serious: Yes (Other)
  Sender: FDA-Public Use
  Company Number: None

PATIENT
  Age: 46 Year
  Sex: Female
  Weight: 90 kg

DRUGS (1)
  1. PALIPERIDONE [Suspect]
     Active Substance: PALIPERIDONE
     Indication: Schizoaffective disorder
     Route: 065

REACTIONS (3)
  - Loss of consciousness [Recovered/Resolved]
  - Hypersensitivity [Recovered/Resolved]
  - Condition aggravated [Recovered/Resolved]
